FAERS Safety Report 5193468-7 (Version None)
Quarter: 2006Q4

REPORT INFORMATION
  Report Type: 
  Country: None (occurrence: None)
  Receive Date: 20061228
  Receipt Date: 20060509
  Transmission Date: 20070319
  Serious: No
  Sender: FDA-Public Use
  Company Number: US-GLAXOSMITHKLINE-A0604885A

PATIENT
  Age: 36 Year
  Sex: Female

DRUGS (6)
  1. FLUTICASONE PROPIONATE [Suspect]
     Dosage: 50MCG PER DAY
     Route: 045
     Dates: start: 20060328
  2. SYNTHROID [Concomitant]
  3. BUSPIRONE HCL [Concomitant]
  4. BUPROPION HCL [Concomitant]
  5. VITAMINS [Concomitant]
  6. GLUCOSAMINE [Concomitant]

REACTIONS (1)
  - DYSPHONIA [None]
